FAERS Safety Report 25077575 (Version 1)
Quarter: 2025Q1

REPORT INFORMATION
  Report Type: Spontaneous
  Country: US (occurrence: US)
  Receive Date: 20250314
  Receipt Date: 20250314
  Transmission Date: 20250408
  Serious: No
  Sender: ELI LILLY AND COMPANY
  Company Number: US-ELI_LILLY_AND_COMPANY-US202503011386

PATIENT
  Age: 57 Year
  Sex: Male

DRUGS (1)
  1. EBGLYSS [Suspect]
     Active Substance: LEBRIKIZUMAB-LBKZ
     Indication: Eczema
     Route: 058
     Dates: start: 20250304

REACTIONS (7)
  - Pruritus [Not Recovered/Not Resolved]
  - Skin tightness [Recovering/Resolving]
  - Pain of skin [Recovering/Resolving]
  - Pigmentation disorder [Not Recovered/Not Resolved]
  - Skin burning sensation [Unknown]
  - Insomnia [Unknown]
  - Injection site bruising [Not Recovered/Not Resolved]

NARRATIVE: CASE EVENT DATE: 20250301
